FAERS Safety Report 6089002-X (Version None)
Quarter: 2009Q1

REPORT INFORMATION
  Report Type: 
  Country: None (occurrence: None)
  Receive Date: 20090224
  Receipt Date: 20090213
  Transmission Date: 20090719
  Serious: Yes (Other)
  Sender: FDA-Public Use
  Company Number: AT-JNJFOC-20090203361

PATIENT

DRUGS (2)
  1. DORIBAX [Suspect]
     Indication: DRUG USE FOR UNKNOWN INDICATION
     Route: 041
  2. SEDATIVE DRUGS [Concomitant]
     Route: 065

REACTIONS (1)
  - CONVULSION [None]
